FAERS Safety Report 5803954-1 (Version None)
Quarter: 2008Q3

REPORT INFORMATION
  Report Type: 
  Country: None (occurrence: None)
  Receive Date: 20080703
  Receipt Date: 20080619
  Transmission Date: 20090109
  Serious: Yes (Life-Threatening, Hospitalization)
  Sender: FDA-Public Use
  Company Number: 2008S1000212

PATIENT
  Age: 47 Year
  Sex: Male

DRUGS (2)
  1. CUBICIN [Suspect]
     Indication: STAPHYLOCOCCAL BACTERAEMIA
     Dosage: 500 MG;X1;IV
     Route: 042
     Dates: start: 20080618, end: 20080618
  2. NAFCILLIN SODIUM [Concomitant]

REACTIONS (10)
  - ACUTE RESPIRATORY FAILURE [None]
  - ANAL PRURITUS [None]
  - CYANOSIS [None]
  - DRUG INEFFECTIVE [None]
  - DYSPNOEA [None]
  - FOAMING AT MOUTH [None]
  - HYPERSENSITIVITY [None]
  - HYPOTENSION [None]
  - LUNG INFILTRATION [None]
  - ORAL PRURITUS [None]
